FAERS Safety Report 7849875-4 (Version None)
Quarter: 2011Q4

REPORT INFORMATION
  Report Type: 
  Country: None (occurrence: None)
  Receive Date: 20111021
  Receipt Date: 20111011
  Transmission Date: 20120403
  Serious: Yes (Hospitalization)
  Sender: FDA-Public Use
  Company Number: 1000024720

PATIENT
  Age: 79 Year
  Sex: Male
  Weight: 75.3 kg

DRUGS (5)
  1. VIIBRYD [Suspect]
     Indication: MAJOR DEPRESSION
     Dosage: 10 MG (10 MG, 1 IN 1 D), ORAL
     Route: 048
     Dates: start: 20110630, end: 20110705
  2. ASPIRIN [Concomitant]
  3. VITAMIN D3 (COLECALCIFEROL) (COLECALCIFEROL) [Concomitant]
  4. PRILOSEC (OMEPRAZOLE) (OMEPRAZOLE) [Concomitant]
  5. OMEGA-3 (OMEGA-3 FATTY ACIDS) (OMEGA-3 FATTY ACIDS) [Concomitant]

REACTIONS (8)
  - PARAESTHESIA [None]
  - MIGRAINE [None]
  - MUSCULAR WEAKNESS [None]
  - BLOOD GLUCOSE INCREASED [None]
  - GAIT DISTURBANCE [None]
  - HYPOAESTHESIA [None]
  - RED BLOOD CELL COUNT DECREASED [None]
  - HEADACHE [None]
